FAERS Safety Report 23205739 (Version 1)
Quarter: 2023Q4

REPORT INFORMATION
  Report Type: Spontaneous
  Country: US (occurrence: US)
  Receive Date: 20231120
  Receipt Date: 20231120
  Transmission Date: 20240110
  Serious: Yes (Other)
  Sender: FDA-Public Use
  Company Number: US-BRAINTREE LABORATORIES, INC.-2023BTE00788

PATIENT
  Age: 75 Year
  Sex: Female

DRUGS (4)
  1. SUTAB [Suspect]
     Active Substance: MAGNESIUM SULFATE\POTASSIUM CHLORIDE\SODIUM SULFATE
     Indication: Colostomy
     Dosage: UNK
     Dates: start: 2022
  2. OFEV [Suspect]
     Active Substance: NINTEDANIB
     Indication: Idiopathic pulmonary fibrosis
     Dosage: 100 MG, 1X/DAY
     Route: 048
     Dates: start: 202207, end: 20220825
  3. OFEV [Suspect]
     Active Substance: NINTEDANIB
     Dosage: 100 MG, EVERY 12 HOUR
     Route: 048
     Dates: start: 20220709, end: 20220804
  4. OFEV [Suspect]
     Active Substance: NINTEDANIB
     Dosage: 100 MG, 1X/DAY
     Route: 048
     Dates: start: 20220805, end: 20220825

REACTIONS (5)
  - Dehydration [Not Recovered/Not Resolved]
  - Asthenia [Not Recovered/Not Resolved]
  - Blood potassium decreased [Not Recovered/Not Resolved]
  - Blood electrolytes decreased [Not Recovered/Not Resolved]
  - Vomiting [Recovered/Resolved]

NARRATIVE: CASE EVENT DATE: 20220817
